FAERS Safety Report 15703770 (Version 1)
Quarter: 2018Q4

REPORT INFORMATION
  Report Type: Spontaneous
  Country: US (occurrence: US)
  Receive Date: 20181210
  Receipt Date: 20181210
  Transmission Date: 20190205
  Serious: Yes (Other)
  Sender: FDA-Public Use
  Company Number: US-GLAXOSMITHKLINE-US2018GSK220742

PATIENT
  Age: 43 Year
  Sex: Female

DRUGS (2)
  1. BENLYSTA [Suspect]
     Active Substance: BELIMUMAB
     Indication: SYSTEMIC LUPUS ERYTHEMATOSUS
  2. BENLYSTA [Suspect]
     Active Substance: BELIMUMAB
     Indication: SYSTEMIC LUPUS ERYTHEMATOSUS
     Dosage: UNK
     Route: 058

REACTIONS (7)
  - Systemic lupus erythematosus [Unknown]
  - Systemic lupus erythematosus rash [Unknown]
  - Depression [Unknown]
  - Nausea [Unknown]
  - Crying [Unknown]
  - Feeling abnormal [Unknown]
  - Skin burning sensation [Unknown]
